FAERS Safety Report 14996210 (Version 1)
Quarter: 2018Q2

REPORT INFORMATION
  Report Type: Spontaneous
  Country: GB (occurrence: GB)
  Receive Date: 20180611
  Receipt Date: 20180611
  Transmission Date: 20180711
  Serious: Yes (Hospitalization)
  Sender: FDA-Public Use
  Company Number: GB-JNJFOC-20180607922

PATIENT
  Age: 9 Year
  Sex: Female

DRUGS (2)
  1. 6-MP [Concomitant]
     Active Substance: MERCAPTOPURINE
     Indication: INFLAMMATORY BOWEL DISEASE
     Route: 065
  2. INFLIXIMAB, RECOMBINANT [Suspect]
     Active Substance: INFLIXIMAB
     Indication: INFLAMMATORY BOWEL DISEASE
     Route: 042

REACTIONS (2)
  - Inflammatory bowel disease [Unknown]
  - Drug ineffective [Unknown]
